FAERS Safety Report 10174094 (Version 3)
Quarter: 2014Q3

REPORT INFORMATION
  Report Type: Spontaneous
  Country: IT (occurrence: IT)
  Receive Date: 20140515
  Receipt Date: 20140718
  Transmission Date: 20150326
  Serious: Yes (Hospitalization)
  Sender: FDA-Public Use
  Company Number: IT-SA-2014SA058042

PATIENT
  Age: 52 Year
  Sex: Female

DRUGS (9)
  1. METFORALMILLE [Suspect]
     Active Substance: METFORMIN HYDROCHLORIDE
     Indication: DRUG ABUSE
     Route: 048
     Dates: start: 20140427, end: 20140427
  2. AMARYL [Suspect]
     Active Substance: GLIMEPIRIDE
     Indication: DRUG ABUSE
     Route: 048
     Dates: start: 20140427, end: 20140427
  3. MINIAS [Suspect]
     Active Substance: LORMETAZEPAM
     Indication: DRUG ABUSE
     Route: 048
     Dates: start: 20140427, end: 20140427
  4. SEROXAT [Suspect]
     Active Substance: PAROXETINE HYDROCHLORIDE
     Indication: DRUG ABUSE
     Route: 048
     Dates: start: 20140427, end: 20140427
  5. MIRTAZAPINE. [Concomitant]
     Active Substance: MIRTAZAPINE
  6. LEXOTAN [Suspect]
     Active Substance: BROMAZEPAM
     Indication: DRUG ABUSE
     Route: 048
     Dates: start: 20140427, end: 20140427
  7. SEQUACOR [Concomitant]
     Active Substance: BISOPROLOL
  8. DEPAMAG [Concomitant]
     Active Substance: VALPROATE MAGNESIUM
  9. DEURSIL [Concomitant]
     Active Substance: URSODIOL

REACTIONS (5)
  - Sopor [Recovered/Resolved]
  - Hypoglycaemia [Recovered/Resolved]
  - Hypotension [Recovered/Resolved]
  - Drug abuse [Unknown]
  - Lactic acidosis [Recovered/Resolved]

NARRATIVE: CASE EVENT DATE: 20140427
